FAERS Safety Report 5692239-2 (Version None)
Quarter: 2008Q2

REPORT INFORMATION
  Report Type: 
  Country: None (occurrence: None)
  Receive Date: 20080402
  Receipt Date: 20071114
  Transmission Date: 20081010
  Serious: Yes (Hospitalization)
  Sender: FDA-Public Use
  Company Number: DE-ABBOTT-08P-044-0444237-00

PATIENT
  Sex: Male
  Weight: 70 kg

DRUGS (9)
  1. RITONAVIR SOFT GELATIN CAPSULES [Suspect]
     Indication: HIV INFECTION
     Route: 048
     Dates: start: 20051125
  2. TMC114 [Concomitant]
     Indication: HIV INFECTION
     Route: 048
     Dates: start: 20051125
  3. TRUVADA [Concomitant]
     Indication: HIV INFECTION
     Route: 048
     Dates: start: 20051125
  4. PREGABALIN [Concomitant]
     Indication: NEUROPATHY PERIPHERAL
     Route: 048
     Dates: start: 20060708
  5. POVIDONE IODINE [Concomitant]
     Indication: DRUG USE FOR UNKNOWN INDICATION
     Route: 061
     Dates: start: 20070705
  6. LACTULOSE [Concomitant]
     Indication: DRUG USE FOR UNKNOWN INDICATION
     Route: 048
     Dates: start: 20070207
  7. OXAZEPAM [Concomitant]
     Indication: SOMNOLENCE
     Route: 048
     Dates: start: 20070705
  8. MOCLOBEMIDE [Concomitant]
     Indication: DEPRESSION
     Dates: start: 20070601
  9. IMIQUIMOD [Concomitant]
     Indication: ANOGENITAL WARTS
     Route: 061
     Dates: start: 20070516

REACTIONS (1)
  - OSTEONECROSIS [None]
